FAERS Safety Report 5372577-3 (Version None)
Quarter: 2007Q2

REPORT INFORMATION
  Report Type: 
  Country: None (occurrence: None)
  Receive Date: 20070627
  Receipt Date: 20070614
  Transmission Date: 20071010
  Serious: Yes (Hospitalization, Disabling)
  Sender: FDA-Public Use
  Company Number: DK-SHR-DK-2007-022774

PATIENT
  Age: 28 Year
  Sex: Female
  Weight: 63 kg

DRUGS (1)
  1. YASMIN [Suspect]
     Indication: ORAL CONTRACEPTION
     Dosage: 1 TAB(S), 21D/28D
     Route: 048
     Dates: start: 20020826, end: 20040901

REACTIONS (1)
  - VISUAL ACUITY REDUCED [None]
